FAERS Safety Report 12638827 (Version 2)
Quarter: 2016Q3

REPORT INFORMATION
  Report Type: Spontaneous
  Country: JP (occurrence: JP)
  Receive Date: 20160809
  Receipt Date: 20160812
  Transmission Date: 20161109
  Serious: No
  Sender: FDA-Public Use
  Company Number: JP-009507513-1608JPN005277

PATIENT
  Age: 6 Year
  Sex: Female

DRUGS (1)
  1. KIPRES [Suspect]
     Active Substance: MONTELUKAST SODIUM
     Indication: PRODUCT USED FOR UNKNOWN INDICATION
     Dosage: UNK UNK, AT BEDTIME
     Route: 048

REACTIONS (1)
  - Throat irritation [Unknown]
